FAERS Safety Report 10692814 (Version 1)
Quarter: 2015Q1

REPORT INFORMATION
  Report Type: Spontaneous
  Country: SE (occurrence: SE)
  Receive Date: 20150106
  Receipt Date: 20150106
  Transmission Date: 20150720
  Serious: Yes (Life-Threatening, Hospitalization)
  Sender: FDA-Public Use
  Company Number: SE-TEVA-531735ISR

PATIENT
  Age: 25 Year
  Sex: Female

DRUGS (5)
  1. OXASCAND [Suspect]
     Active Substance: OXAZEPAM
     Dosage: THE PATIENT TOOK UNKNOWN QUANTITY OF TABLETS OF UNKNOWN STRENGTH AT ONE POINT
     Route: 048
     Dates: start: 20131108, end: 20131108
  2. LITHIONIT [Concomitant]
     Active Substance: LITHIUM SULFATE
  3. PROPAVAN [Suspect]
     Active Substance: PROPIOMAZINE
     Dosage: THE PATIENT TOOK THE UNKNOWN QUANTITY OF TABLETS AT ONE TIME
     Route: 048
     Dates: start: 20131108, end: 20131108
  4. IMOVANE [Suspect]
     Active Substance: ZOPICLONE
     Dosage: THE PATIENT TOOK UNKNOWN QUANTITY OF TABLETS OF UNKNOWN STRENGTH AT ONE POINT
     Route: 048
     Dates: start: 20131108, end: 20131108
  5. YASMIN [Concomitant]
     Active Substance: DROSPIRENONE\ETHINYL ESTRADIOL

REACTIONS (2)
  - Loss of consciousness [Recovered/Resolved]
  - Toxicity to various agents [Recovered/Resolved]

NARRATIVE: CASE EVENT DATE: 20131108
